FAERS Safety Report 10595268 (Version 1)
Quarter: 2014Q4

REPORT INFORMATION
  Report Type: Spontaneous
  Country: US (occurrence: None)
  Receive Date: 20141119
  Receipt Date: 20141119
  Transmission Date: 20150529
  Serious: Yes (Life-Threatening, Hospitalization)
  Sender: FDA-Public Use
  Company Number: None

PATIENT
  Age: 66 Year
  Sex: Male
  Weight: 97.4 kg

DRUGS (2)
  1. LINEZOLID. [Suspect]
     Active Substance: LINEZOLID
     Indication: PAIN
     Route: 048
     Dates: start: 20140620, end: 20140630
  2. LINEZOLID. [Suspect]
     Active Substance: LINEZOLID
     Indication: URINARY TRACT INFECTION STAPHYLOCOCCAL
     Route: 048
     Dates: start: 20140620, end: 20140630

REACTIONS (4)
  - Coagulopathy [None]
  - Encephalopathy [None]
  - Acute hepatic failure [None]
  - Lactic acidosis [None]

NARRATIVE: CASE EVENT DATE: 20140630
